FAERS Safety Report 4643163-5 (Version None)
Quarter: 2005Q2

REPORT INFORMATION
  Report Type: 
  Country: None (occurrence: None)
  Receive Date: 20050422
  Receipt Date: 20050413
  Transmission Date: 20051028
  Serious: Yes (Other)
  Sender: FDA-Public Use
  Company Number: AU-MERCK-0504AUS00118

PATIENT
  Age: 77 Year
  Sex: Male

DRUGS (3)
  1. TIMOPTIC [Suspect]
     Route: 047
  2. TIMPILO [Concomitant]
     Route: 047
  3. [THERAPY UNSPECIFIED] [Suspect]
     Route: 047

REACTIONS (3)
  - ADVERSE EVENT [None]
  - CORNEAL DISORDER [None]
  - INTRAOCULAR PRESSURE TEST ABNORMAL [None]
